FAERS Safety Report 12490095 (Version 1)
Quarter: 2016Q2

REPORT INFORMATION
  Report Type: Spontaneous
  Country: GB (occurrence: GB)
  Receive Date: 20160622
  Receipt Date: 20160622
  Transmission Date: 20160815
  Serious: Yes (Other)
  Sender: FDA-Public Use
  Company Number: GB-TEVA-668585ACC

PATIENT
  Age: 42 Year
  Sex: Female
  Weight: 73 kg

DRUGS (8)
  1. SERTRALINE [Concomitant]
     Active Substance: SERTRALINE HYDROCHLORIDE
     Dosage: 1 DOSAGE FORMS DAILY;
     Dates: start: 20150420
  2. SALBUTAMOL [Concomitant]
     Active Substance: ALBUTEROL
     Dosage: 2 PUFFS
     Dates: start: 20141205
  3. VITAMIN B SUBSTANCES [Concomitant]
     Dosage: 2 DOSAGE FORMS DAILY;
     Dates: start: 20141205
  4. THIAMINE. [Concomitant]
     Active Substance: THIAMINE
     Dosage: 1 DOSAGE FORMS DAILY;
     Dates: start: 20141205
  5. FLUCLOXACILLIN [Concomitant]
     Active Substance: FLUCLOXACILLIN
     Dosage: 4 DOSAGE FORMS DAILY;
     Dates: start: 20160601
  6. CITALOPRAM [Suspect]
     Active Substance: CITALOPRAM HYDROBROMIDE
     Dates: start: 20160601
  7. PROPRANOLOL [Concomitant]
     Active Substance: PROPRANOLOL\PROPRANOLOL HYDROCHLORIDE
     Dosage: 2 TIMES/DAY
     Dates: start: 20160129
  8. CERAZETTE [Concomitant]
     Active Substance: DESOGESTREL
     Dosage: 1 DOSAGE FORMS DAILY;
     Dates: start: 20141205

REACTIONS (1)
  - Depression [Recovered/Resolved]

NARRATIVE: CASE EVENT DATE: 20160601
